FAERS Safety Report 14013518 (Version 1)
Quarter: 2017Q3

REPORT INFORMATION
  Report Type: Spontaneous
  Country: JP (occurrence: JP)
  Receive Date: 20170926
  Receipt Date: 20170926
  Transmission Date: 20171128
  Serious: Yes (Death, Hospitalization)
  Sender: FDA-Public Use
  Company Number: JP-PFIZER INC-2017412559

PATIENT
  Age: 80 Year
  Sex: Male
  Weight: 48 kg

DRUGS (4)
  1. CYPROHEPTADINE HYDROCHLORIDE. [Concomitant]
     Active Substance: CYPROHEPTADINE HYDROCHLORIDE
     Dosage: 1 DF, 3X/DAY, (AFTER EACH MEAL)
  2. HUSCOBRON [Suspect]
     Active Substance: CHLORPHENIRAMINE MALEATE\DIHYDROCODEINE\METHYLEPHEDRINE HYDROCHLORIDE, DL-
     Dosage: 10 ML, DAILY, (3 DIVIDED DOSES AFTER EACH MEAL)
     Route: 048
  3. LEVOFLOXACIN HEMIHYDRATE [Concomitant]
     Active Substance: LEVOFLOXACIN
     Dosage: 1 DF, 1X/DAY, (AFTER LUNCH)
  4. AMLODIPINE BESILATE [Suspect]
     Active Substance: AMLODIPINE BESYLATE
     Indication: HYPERTENSION
     Dosage: 5 MG, 1X/DAY, (AFTER BREAKFAST)
     Route: 048

REACTIONS (2)
  - Pneumonia aspiration [Unknown]
  - Death [Fatal]
